FAERS Safety Report 6991973-1 (Version None)
Quarter: 2010Q3

REPORT INFORMATION
  Report Type: 
  Country: None (occurrence: None)
  Receive Date: 20100917
  Receipt Date: 20100909
  Transmission Date: 20110219
  Serious: Yes (Hospitalization)
  Sender: FDA-Public Use
  Company Number: US-US-EMD SERONO, INC.-7011258

PATIENT
  Sex: Female
  Weight: 62 kg

DRUGS (2)
  1. REBIF [Suspect]
     Indication: MULTIPLE SCLEROSIS
     Route: 058
     Dates: start: 20050804
  2. CITALOPRAM HYDROBROMIDE [Concomitant]

REACTIONS (5)
  - DEPRESSION [None]
  - HALLUCINATION [None]
  - INTENTIONAL SELF-INJURY [None]
  - ORAL SURGERY [None]
  - SUICIDE ATTEMPT [None]
